FAERS Safety Report 7586373-X (Version None)
Quarter: 2011Q3

REPORT INFORMATION
  Report Type: 
  Country: None (occurrence: None)
  Receive Date: 20110701
  Receipt Date: 20110610
  Transmission Date: 20111222
  Serious: Yes (Hospitalization)
  Sender: FDA-Public Use
  Company Number: A0806084A

PATIENT
  Age: 54 Year
  Sex: Female
  Weight: 97.7 kg

DRUGS (4)
  1. LEVOTHYROXINE SODIUM [Concomitant]
  2. ZETIA [Concomitant]
  3. METFORMIN HCL [Concomitant]
  4. AVANDIA [Suspect]
     Indication: DIABETES MELLITUS
     Dosage: 8MG PER DAY
     Route: 048

REACTIONS (2)
  - MYOCARDIAL INFARCTION [None]
  - TRANSIENT ISCHAEMIC ATTACK [None]
